FAERS Safety Report 5270296-5 (Version None)
Quarter: 2007Q1

REPORT INFORMATION
  Report Type: 
  Country: None (occurrence: None)
  Receive Date: 20070320
  Receipt Date: 20070308
  Transmission Date: 20070707
  Serious: Yes (Death, Other)
  Sender: FDA-Public Use
  Company Number: US-PFIZER INC-2005048449

PATIENT
  Sex: Female
  Weight: 73.9 kg

DRUGS (11)
  1. NEURONTIN [Suspect]
     Indication: PROCEDURAL PAIN
     Route: 048
     Dates: start: 20040201, end: 20040720
  2. DIFLUCAN [Concomitant]
     Route: 065
  3. DIPHENOXYLATE [Concomitant]
     Route: 065
  4. PROPOXYPHENE NAPSYLATE [Concomitant]
     Route: 065
  5. LEVOTHYROXINE SODIUM [Concomitant]
     Route: 065
  6. GLUCOSAMINE [Concomitant]
     Route: 065
  7. CHONDROITIN [Concomitant]
     Route: 065
  8. RELAFEN [Concomitant]
     Route: 065
  9. TYLENOL W/ CODEINE NO. 3 [Concomitant]
     Route: 048
  10. LEVOTHROID [Concomitant]
     Route: 065
  11. VOLTAREN [Concomitant]
     Route: 048

REACTIONS (9)
  - ABASIA [None]
  - ANXIETY [None]
  - CERVICAL VERTEBRAL FRACTURE [None]
  - COMPLETED SUICIDE [None]
  - DRUG INEFFECTIVE [None]
  - HAEMORRHAGE [None]
  - PETECHIAE [None]
  - SUICIDE ATTEMPT [None]
  - UNEVALUABLE EVENT [None]
